FAERS Safety Report 8310626-0 (Version None)
Quarter: 2012Q2

REPORT INFORMATION
  Report Type: 
  Country: None (occurrence: None)
  Receive Date: 20120425
  Receipt Date: 20120425
  Transmission Date: 20120825
  Serious: Yes (Other)
  Sender: FDA-Public Use
  Company Number: None

PATIENT
  Age: 42 Year
  Sex: Male
  Weight: 77.11 kg

DRUGS (8)
  1. MIRTAZAPINE [Suspect]
     Indication: GENERALISED ANXIETY DISORDER
     Dosage: 15MG
     Route: 048
  2. MIRTAZAPINE [Suspect]
     Indication: OBSESSIVE-COMPULSIVE DISORDER
     Dosage: 15MG
     Route: 048
  3. MIRTAZAPINE [Suspect]
     Indication: INSOMNIA
     Dosage: 15MG
     Route: 048
  4. MIRTAZAPINE [Suspect]
     Indication: MAJOR DEPRESSION
     Dosage: 15MG
     Route: 048
  5. MIRTAZAPINE [Suspect]
     Indication: GENERALISED ANXIETY DISORDER
     Dosage: 15MG
     Route: 048
  6. MIRTAZAPINE [Suspect]
     Indication: OBSESSIVE-COMPULSIVE DISORDER
     Dosage: 15MG
     Route: 048
  7. MIRTAZAPINE [Suspect]
     Indication: INSOMNIA
     Dosage: 15MG
     Route: 048
  8. MIRTAZAPINE [Suspect]
     Indication: MAJOR DEPRESSION
     Dosage: 15MG
     Route: 048

REACTIONS (2)
  - PANIC ATTACK [None]
  - DRUG INTERACTION [None]
